FAERS Safety Report 8228734-1 (Version None)
Quarter: 2012Q1

REPORT INFORMATION
  Report Type: 
  Country: None (occurrence: None)
  Receive Date: 20120322
  Receipt Date: 20101115
  Transmission Date: 20120608
  Serious: Yes (Hospitalization)
  Sender: FDA-Public Use
  Company Number: US-GLAXOSMITHKLINE-A0896460A

PATIENT
  Sex: Male
  Weight: 81 kg

DRUGS (3)
  1. PRANDIN [Concomitant]
  2. METFORMIN HCL [Concomitant]
     Dates: end: 20100901
  3. AVANDIA [Suspect]
     Indication: DIABETES MELLITUS
     Dosage: 4MG TWICE PER DAY
     Route: 048
     Dates: start: 19990101, end: 20100910

REACTIONS (4)
  - CARDIOVASCULAR DISORDER [None]
  - CARDIAC DISORDER [None]
  - ACUTE MYOCARDIAL INFARCTION [None]
  - CORONARY ARTERY DISEASE [None]
